FAERS Safety Report 9870833 (Version 2)
Quarter: 2014Q1

REPORT INFORMATION
  Report Type: Spontaneous
  Country: IT (occurrence: None)
  Receive Date: 20140203
  Receipt Date: 20140214
  Transmission Date: 20141002
  Serious: Yes (Hospitalization)
  Sender: FDA-Public Use
  Company Number: 2014AP000944

PATIENT
  Age: 89 Year
  Sex: Female

DRUGS (8)
  1. LEVOFLOXACIN [Suspect]
     Indication: URINARY TRACT INFECTION
     Dosage: 500 MG;QD PO
     Route: 048
     Dates: start: 20131121, end: 20131124
  2. DEURSIL [Concomitant]
  3. NORMIX (RIFAXIMIN) [Concomitant]
  4. ACEQUIDE (GEZOR) [Concomitant]
  5. PANTOPAN (PANTOPRAZOLE SODIUM) [Concomitant]
  6. LASIX /00032601/ (FUROSEMIDE) UNK, UNKUNK [Concomitant]
  7. CARDURA (DOXAZOSIN MESILATE) [Concomitant]
  8. ACETYLSALICYLIC ACID (ACETYLSALICYLIC ACID) [Concomitant]

REACTIONS (4)
  - Confusional state [None]
  - Disorientation [None]
  - Hallucination, visual [None]
  - Dehydration [None]
